FAERS Safety Report 9798519 (Version 1)
Quarter: 2014Q1

REPORT INFORMATION
  Report Type: Spontaneous
  Country: US (occurrence: US)
  Receive Date: 20140106
  Receipt Date: 20140106
  Transmission Date: 20141002
  Serious: No
  Sender: FDA-Public Use
  Company Number: US-BAYER-2014-001330

PATIENT
  Age: 91 Year
  Sex: Male
  Weight: 58.05 kg

DRUGS (2)
  1. ALEVE TABLET [Suspect]
     Indication: ARTHRITIS
     Dosage: 1 DF, BID
     Route: 048
     Dates: start: 2013
  2. LORTAB [HYDROCODONE BITARTRATE,PARACETAMOL] [Concomitant]
     Dosage: UNK UNK, PRN

REACTIONS (1)
  - Incorrect drug administration duration [None]
